FAERS Safety Report 5242025-2 (Version None)
Quarter: 2007Q1

REPORT INFORMATION
  Report Type: 
  Country: None (occurrence: None)
  Receive Date: 20070212
  Receipt Date: 20070201
  Transmission Date: 20070707
  Serious: No
  Sender: FDA-Public Use
  Company Number: SPV1-2006-02054

PATIENT
  Age: 5 Year
  Sex: Female
  Weight: 28.8 kg

DRUGS (1)
  1. DAYTRANA [Suspect]
     Dosage: 10 MG TRANSDERMAL
     Route: 062
     Dates: start: 20061020, end: 20061024

REACTIONS (5)
  - DYSARTHRIA [None]
  - FEELING ABNORMAL [None]
  - OFF LABEL USE [None]
  - POOR QUALITY SLEEP [None]
  - TREMOR [None]
